FAERS Safety Report 7298418-5 (Version None)
Quarter: 2011Q1

REPORT INFORMATION
  Report Type: 
  Country: None (occurrence: None)
  Receive Date: 20110204
  Receipt Date: 20110127
  Transmission Date: 20110831
  Serious: Yes (Other)
  Sender: FDA-Public Use
  Company Number: AXC-2011-000039

PATIENT
  Age: 20 Year
  Sex: Female

DRUGS (1)
  1. MESALAMINE (MESALAMINE) UNKNOWN [Suspect]
     Indication: COLITIS ULCERATIVE

REACTIONS (4)
  - HAEMATOCHEZIA [None]
  - ORGANISING PNEUMONIA [None]
  - INTERSTITIAL LUNG DISEASE [None]
  - DRUG HYPERSENSITIVITY [None]
